FAERS Safety Report 4406002-3 (Version None)
Quarter: 2004Q3

REPORT INFORMATION
  Report Type: 
  Country: None (occurrence: None)
  Receive Date: 20040715
  Receipt Date: 20040629
  Transmission Date: 20050211
  Serious: No
  Sender: FDA-Public Use
  Company Number: 1999-BP-00897 (1)

PATIENT
  Age: 1 Year
  Sex: Male
  Weight: 16.2 kg

DRUGS (4)
  1. VIRAMUNE [Suspect]
     Indication: HIV INFECTION
     Dosage: 196 MG (,Q12H), PO
     Route: 048
     Dates: start: 19980323
  2. 3TC [Suspect]
     Dosage: 80 MG, PO
     Route: 048
     Dates: start: 19980323
  3. ZDV (ZIDOVUDINE) [Suspect]
     Dosage: 176 MG, PO
     Route: 048
     Dates: start: 19980323
  4. 1592U89 [Suspect]
     Dosage: 160 MG, PO
     Route: 048
     Dates: start: 19980323

REACTIONS (1)
  - NEUTROPHIL COUNT DECREASED [None]
